FAERS Safety Report 23638957 (Version 2)
Quarter: 2024Q1

REPORT INFORMATION
  Report Type: Spontaneous
  Country: CH (occurrence: CH)
  Receive Date: 20240315
  Receipt Date: 20240320
  Transmission Date: 20240409
  Serious: Yes (Hospitalization)
  Sender: FDA-Public Use
  Company Number: None

PATIENT
  Age: 45 Year
  Sex: Female

DRUGS (4)
  1. LONSURF [Suspect]
     Active Substance: TIPIRACIL HYDROCHLORIDE\TRIFLURIDINE
     Indication: Pancreatic carcinoma stage IV
     Dosage: 60 MG BID, D1-5, D8-12, EVERY 4 WEEKS
     Route: 048
     Dates: start: 20231024, end: 20231028
  2. LONSURF [Suspect]
     Active Substance: TIPIRACIL HYDROCHLORIDE\TRIFLURIDINE
     Dosage: D1-5, D8-12, EVERY 4 WEEKS
     Route: 048
     Dates: start: 20231031, end: 20231104
  3. LONSURF [Suspect]
     Active Substance: TIPIRACIL HYDROCHLORIDE\TRIFLURIDINE
     Dosage: 40 MG, BID
     Route: 048
     Dates: start: 20231227, end: 20240105
  4. ONIVYDE [Suspect]
     Active Substance: IRINOTECAN HYDROCHLORIDE
     Indication: Pancreatic carcinoma stage IV
     Dosage: 1 DF SOLUTION
     Route: 042
     Dates: start: 20231024, end: 20231107

REACTIONS (5)
  - Enterocolitis haemorrhagic [Not Recovered/Not Resolved]
  - Neutropenia [Recovered/Resolved]
  - Off label use [Recovered/Resolved]
  - Product use issue [Recovered/Resolved]
  - Product use issue [Recovered/Resolved]

NARRATIVE: CASE EVENT DATE: 20231024
